FAERS Safety Report 21197765 (Version 2)
Quarter: 2022Q3

REPORT INFORMATION
  Report Type: Report from Study
  Country: SG (occurrence: None)
  Receive Date: 20220810
  Receipt Date: 20220907
  Transmission Date: 20221027
  Serious: Yes (Hospitalization)
  Sender: FDA-Public Use
  Company Number: SG-ROCHE-3156566

PATIENT
  Age: 66 Year
  Sex: Male
  Weight: 61.9 kg

DRUGS (3)
  1. ATEZOLIZUMAB [Suspect]
     Active Substance: ATEZOLIZUMAB
     Indication: Non-small cell lung cancer
     Dosage: DATE OF LAST ADMIN. BEFORE SAE: 21/JUL/2022
     Route: 041
     Dates: start: 20210609
  2. BEVACIZUMAB [Suspect]
     Active Substance: BEVACIZUMAB
     Indication: Non-small cell lung cancer
     Dosage: DATE OF LAST ADMIN. BEFORE SAE: 21/JUL/2022
     Route: 042
     Dates: start: 20210609
  3. PEMETREXED [Suspect]
     Active Substance: PEMETREXED
     Indication: Non-small cell lung cancer
     Dosage: DATE OF LAST ADMIN. BEFORE SAE: 21/JUL/2022
     Route: 042
     Dates: start: 20210609

REACTIONS (1)
  - Pyrexia [Recovered/Resolved]

NARRATIVE: CASE EVENT DATE: 20220728
